FAERS Safety Report 20186413 (Version 1)
Quarter: 2021Q4

REPORT INFORMATION
  Report Type: Spontaneous
  Country: US (occurrence: US)
  Receive Date: 20211215
  Receipt Date: 20211215
  Transmission Date: 20220303
  Serious: No
  Sender: FDA-Public Use
  Company Number: US-RECKITT BENCKISER HEALTHCARE INT LIMITED-RB-94425-2021

PATIENT
  Sex: Female
  Weight: 63.5 kg

DRUGS (10)
  1. DELSYM [Suspect]
     Active Substance: DEXTROMETHORPHAN
     Indication: Cough
     Dosage: UNK
     Route: 065
     Dates: start: 2021
  2. CODEINE [Suspect]
     Active Substance: CODEINE
     Indication: Cough
     Dosage: UNK
     Route: 065
     Dates: start: 2021
  3. PROMETHAZINE [Suspect]
     Active Substance: PROMETHAZINE HYDROCHLORIDE
     Indication: Cough
     Dosage: UNK
     Route: 065
     Dates: start: 2021
  4. ATORVASTATIN [Concomitant]
     Active Substance: ATORVASTATIN
     Indication: Blood cholesterol
     Dosage: 20 MILLIGRAM, QD (20MG TOOK ONCE DAILY BY MOUTH)
     Route: 048
     Dates: start: 2010
  5. VALSARTAN [Concomitant]
     Active Substance: VALSARTAN
     Indication: Hypertension
     Dosage: 150 MILLIGRAM, QD (150MG; TOOK ONCE DAILY BY MOUTH)
     Route: 048
     Dates: start: 2010
  6. GABAPENTIN [Concomitant]
     Active Substance: GABAPENTIN
     Indication: Product used for unknown indication
     Dosage: 300 MILLIGRAM, BID (300MG; TOOK TWO DAILY BY MOUTH)
     Route: 048
  7. METOPROLOL [Concomitant]
     Active Substance: METOPROLOL
     Indication: Hypertension
     Dosage: 25 MILLIGRAM, QD (25MG; TOOK ONCE DAILY BY MOUTH)
     Route: 048
  8. OMEPRAZOLE [Concomitant]
     Active Substance: OMEPRAZOLE
     Indication: Oesophageal disorder
     Dosage: 40 MILLIGRAM, QD (400 MG; TOOK ONCE DAILY BY MOUTH)
     Route: 048
  9. FLUTICASONE PROPIONATE [Concomitant]
     Active Substance: FLUTICASONE PROPIONATE
     Indication: Rash
     Dosage: UNK
     Route: 065
     Dates: start: 2021
  10. KETOCONAZOLE [Concomitant]
     Active Substance: KETOCONAZOLE
     Indication: Rash
     Dosage: UNK
     Route: 065
     Dates: start: 2021

REACTIONS (1)
  - Drug ineffective [Not Recovered/Not Resolved]
